FAERS Safety Report 14853011 (Version 1)
Quarter: 2018Q2

REPORT INFORMATION
  Report Type: Report from Study
  Country: ES (occurrence: ES)
  Receive Date: 20180507
  Receipt Date: 20180507
  Transmission Date: 20180711
  Serious: Yes (Hospitalization)
  Sender: FDA-Public Use
  Company Number: ES-TEVA-2018-ES-887143

PATIENT
  Age: 98 Year
  Sex: Male

DRUGS (6)
  1. ATORVASTATINA (7400A) [Concomitant]
     Active Substance: ATORVASTATIN
     Dosage: 0-0-1
     Route: 048
     Dates: start: 20170324
  2. ENALAPRIL [Suspect]
     Active Substance: ENALAPRIL
     Dosage: 5 MG DIA
     Route: 048
     Dates: start: 20151228, end: 20170910
  3. HIGROTONA 50 MG , 30 COMPRIMIDOS [Interacting]
     Active Substance: CHLORTHALIDONE
     Dosage: 1/2 CP DIA
     Route: 048
  4. SEGURIL 40 MG COMPRIMIDOS 30 COMPRIMIDO (FUROSEMIDE) [Interacting]
     Active Substance: FUROSEMIDE
     Dosage: 1-1-0
     Route: 048
     Dates: start: 20100420, end: 20170910
  5. BISOPROLOL [Interacting]
     Active Substance: BISOPROLOL
     Dosage: 0-0-1
     Route: 048
     Dates: start: 20170324
  6. SINTROM [Concomitant]
     Active Substance: ACENOCOUMAROL
     Dosage: SP
     Route: 048
     Dates: start: 20160217

REACTIONS (2)
  - Acute kidney injury [Recovered/Resolved]
  - Drug interaction [Unknown]

NARRATIVE: CASE EVENT DATE: 20170910
